FAERS Safety Report 5218924-4 (Version None)
Quarter: 2007Q1

REPORT INFORMATION
  Report Type: 
  Country: None (occurrence: None)
  Receive Date: 20070125
  Receipt Date: 20070118
  Transmission Date: 20070707
  Serious: Yes (Hospitalization)
  Sender: FDA-Public Use
  Company Number: US-AVENTIS-200710128GDDC

PATIENT
  Age: 62 Year
  Sex: Male
  Weight: 75 kg

DRUGS (19)
  1. TAXOTERE [Suspect]
     Indication: PROSTATE CANCER
     Route: 042
     Dates: start: 20061221, end: 20061221
  2. UNKNOWN DRUG [Suspect]
     Indication: PROSTATE CANCER
     Route: 048
     Dates: start: 20061005, end: 20070102
  3. CELEXA                             /00582602/ [Concomitant]
     Route: 048
  4. CENTRUM SILVER                     /01292501/ [Concomitant]
     Dosage: DOSE: 1 TABLET
     Route: 048
  5. COMPAZINE [Concomitant]
     Dosage: DOSE: 10 MG 1 TABLET Q6H PRN
     Route: 048
  6. DECADRON [Concomitant]
     Dosage: DOSE: 4 MG TAKE TWICE A DAY FOR 3 DAYS BEGINNING ON THE DAY PRIOR TO CHEMO.
     Route: 048
  7. FENTANYL TRANSDERMAL SYSTEM [Concomitant]
     Dosage: DOSE: 50 MCG/HR, APPLY ONE PATCH TO SKIN Q72H X 30 DAYS
     Route: 023
  8. FOSAMAX [Concomitant]
     Route: 048
  9. GLUCOSAMINE [Concomitant]
     Dosage: DOSE: 3 TABLET
     Route: 048
  10. IBUPROFEN [Concomitant]
     Indication: PAIN
     Dosage: DOSE: 600 MG QID PRN
     Route: 048
  11. LACTULOSE [Concomitant]
     Indication: CONSTIPATION
     Dosage: DOSE: 30 ML BID PRN X 30 DAYS
     Route: 048
  12. LUPRON [Concomitant]
     Route: 030
  13. OXYCODONE HCL [Concomitant]
     Indication: PAIN
     Dosage: DOSE: 5 MG 1-2 TABLETS Q3-4H PRN
     Route: 048
  14. PERCOCET                           /00867901/ [Concomitant]
     Indication: PAIN
     Dosage: DOSE: 325-5, 1 TABLET Q4-6H PRN X 30 DAYS
     Route: 048
  15. PREDNISONE [Concomitant]
     Route: 048
  16. TEMAZEPAM [Concomitant]
     Route: 048
  17. VIT B COMPLEX [Concomitant]
     Dosage: DOSE: 1 TABLET
     Route: 048
  18. WELLBUTRIN [Concomitant]
     Route: 048
  19. LEVSIN [Concomitant]
     Dosage: DOSE: 0.0625 MG Q4H PRN
     Route: 048

REACTIONS (7)
  - CONFUSIONAL STATE [None]
  - COUGH [None]
  - DIARRHOEA [None]
  - DYSPNOEA [None]
  - HYPOKALAEMIA [None]
  - PNEUMONIA [None]
  - PYREXIA [None]
